FAERS Safety Report 6219908-X (Version None)
Quarter: 2009Q2

REPORT INFORMATION
  Report Type: 
  Country: None (occurrence: None)
  Receive Date: 20090609
  Receipt Date: 20090526
  Transmission Date: 20091009
  Serious: Yes (Hospitalization)
  Sender: FDA-Public Use
  Company Number: A0775936A

PATIENT
  Age: 71 Year
  Sex: Male

DRUGS (7)
  1. AVANDIA [Suspect]
     Indication: DIABETES MELLITUS
     Dosage: 4MG PER DAY
     Route: 048
     Dates: start: 20010101, end: 20070501
  2. NORVASC [Concomitant]
  3. LOPID [Concomitant]
  4. ALLOPURINOL [Concomitant]
  5. TOPROL-XL [Concomitant]
  6. AMIODARONE HCL [Concomitant]
  7. FERROUS SULFATE TAB [Concomitant]

REACTIONS (11)
  - AORTIC STENOSIS [None]
  - ATRIAL FIBRILLATION [None]
  - ATRIOVENTRICULAR BLOCK [None]
  - CARDIAC MURMUR [None]
  - LEFT VENTRICULAR HYPERTROPHY [None]
  - MYOCARDIAL INFARCTION [None]
  - MYOCARDIAL ISCHAEMIA [None]
  - PRESYNCOPE [None]
  - ROAD TRAFFIC ACCIDENT [None]
  - SOMNAMBULISM [None]
  - SYNCOPE [None]
